FAERS Safety Report 17089264 (Version 1)
Quarter: 2019Q4

REPORT INFORMATION
  Report Type: Spontaneous
  Country: DE (occurrence: DE)
  Receive Date: 20191128
  Receipt Date: 20191128
  Transmission Date: 20200122
  Serious: Yes (Other)
  Sender: FDA-Public Use
  Company Number: NVSC2019DE049417

PATIENT
  Age: 3 Year
  Sex: Male

DRUGS (1)
  1. AZITHROMYCIN HEXAL 200 MG/5 ML PULVER ZUR HERSTELLUNG EINER SUSPENSION [Suspect]
     Active Substance: AZITHROMYCIN
     Indication: ANTIBIOTIC THERAPY
     Dosage: UNK, QD
     Route: 065
     Dates: start: 20191114, end: 20191116

REACTIONS (12)
  - Malaise [Unknown]
  - Decreased appetite [Unknown]
  - Abdominal pain [Unknown]
  - Hot flush [Unknown]
  - Pyrexia [Unknown]
  - Visual impairment [Unknown]
  - Flatulence [Unknown]
  - Diarrhoea [Unknown]
  - Fatigue [Unknown]
  - Tongue discolouration [Unknown]
  - Urinary retention [Unknown]
  - Palpitations [Unknown]

NARRATIVE: CASE EVENT DATE: 201011
